FAERS Safety Report 7435985-2 (Version None)
Quarter: 2011Q2

REPORT INFORMATION
  Report Type: 
  Country: None (occurrence: None)
  Receive Date: 20110425
  Receipt Date: 20110413
  Transmission Date: 20111010
  Serious: Yes (Other)
  Sender: FDA-Public Use
  Company Number: US-CELGENEUS-163-21880-11030171

PATIENT
  Sex: Male

DRUGS (3)
  1. REVLIMID [Suspect]
     Indication: MULTIPLE MYELOMA
     Dosage: 15 MILLIGRAM
     Route: 048
     Dates: start: 20110110, end: 20110203
  2. BORTEZOMIB [Concomitant]
     Route: 065
  3. BORTEZOMIB [Concomitant]
     Dosage: 1 MILLIGRAM/SQ. METER
     Route: 065
     Dates: start: 20110120

REACTIONS (4)
  - INSOMNIA [None]
  - NEUROPATHY PERIPHERAL [None]
  - DELUSION [None]
  - TREMOR [None]
